FAERS Safety Report 5424676-5 (Version None)
Quarter: 2007Q3

REPORT INFORMATION
  Report Type: 
  Country: None (occurrence: None)
  Receive Date: 20070824
  Receipt Date: 20070817
  Transmission Date: 20080115
  Serious: Yes (Hospitalization)
  Sender: FDA-Public Use
  Company Number: PHEH2007US11315

PATIENT

DRUGS (3)
  1. TEKTURNA [Suspect]
     Indication: HYPERTENSION
     Dosage: 150 MG, QD
     Route: 048
  2. DIOVAN [Concomitant]
     Dosage: 320 MG, UNK
  3. DIURETICS [Concomitant]

REACTIONS (3)
  - BALANCE DISORDER [None]
  - NAUSEA [None]
  - VOMITING [None]
